FAERS Safety Report 6163134-X (Version None)
Quarter: 2009Q2

REPORT INFORMATION
  Report Type: 
  Country: None (occurrence: None)
  Receive Date: 20090422
  Receipt Date: 20090416
  Transmission Date: 20091009
  Serious: No
  Sender: FDA-Public Use
  Company Number: US-JNJFOC-20090404645

PATIENT
  Sex: Female
  Weight: 70.31 kg

DRUGS (9)
  1. FENTANYL TRANSDERMAL SYSTEM [Suspect]
     Indication: INTERVERTEBRAL DISC DEGENERATION
     Route: 062
  2. OXYCONTIN [Concomitant]
     Indication: PAIN
     Route: 048
  3. DIOVAN [Concomitant]
     Indication: HYPERTENSION
     Route: 048
  4. TRICOR [Concomitant]
     Indication: BLOOD CHOLESTEROL INCREASED
     Route: 048
  5. HYDROCHLOROTHIAZIDE [Concomitant]
     Indication: FLUID RETENTION
     Route: 048
  6. VALIUM [Concomitant]
     Indication: SLEEP DISORDER THERAPY
     Dosage: AT BED TIME AS NEEDED
     Route: 048
  7. ASPIRIN [Concomitant]
     Indication: PROPHYLAXIS
     Route: 048
  8. FLEXERIL [Concomitant]
     Indication: MYALGIA
     Dosage: BED TIME
     Route: 048
  9. PROZAC [Concomitant]
     Indication: SLEEP DISORDER THERAPY
     Dosage: BED TIME
     Route: 048

REACTIONS (6)
  - DRUG INEFFECTIVE [None]
  - HYPERHIDROSIS [None]
  - INSOMNIA [None]
  - MYALGIA [None]
  - PRODUCT QUALITY ISSUE [None]
  - WRONG TECHNIQUE IN DRUG USAGE PROCESS [None]
